FAERS Safety Report 6851835-7 (Version None)
Quarter: 2010Q3

REPORT INFORMATION
  Report Type: 
  Country: None (occurrence: None)
  Receive Date: 20100717
  Receipt Date: 20071030
  Transmission Date: 20110219
  Serious: Yes (Hospitalization)
  Sender: FDA-Public Use
  Company Number: US-PFIZER INC-2007092479

PATIENT
  Sex: Female

DRUGS (2)
  1. CHANTIX [Suspect]
  2. CORTICOSTEROIDS [Concomitant]

REACTIONS (3)
  - ABNORMAL DREAMS [None]
  - CONSTIPATION [None]
  - DYSPNOEA [None]
